FAERS Safety Report 7902178-1 (Version None)
Quarter: 2011Q4

REPORT INFORMATION
  Report Type: 
  Country: None (occurrence: None)
  Receive Date: 20111108
  Receipt Date: 20111031
  Transmission Date: 20120403
  Serious: Yes (Hospitalization, Other)
  Sender: FDA-Public Use
  Company Number: US-ABBOTT-11P-163-0863614-00

PATIENT
  Age: 23 Year
  Sex: Female

DRUGS (10)
  1. HUMIRA [Suspect]
     Indication: CROHN'S DISEASE
     Dates: end: 20110830
  2. PREDNISONE [Concomitant]
     Dosage: TAPER DOWN 2.5 MG EVERY TWO WEEKS
  3. HUMIRA [Suspect]
  4. IRON [Suspect]
     Indication: PRODUCT USED FOR UNKNOWN INDICATION
  5. IRON [Suspect]
  6. B12 NASAL SPRAY [Concomitant]
     Indication: PRODUCT USED FOR UNKNOWN INDICATION
  7. NORGESTIMATE AND ETHINYL ESTRADIOL [Concomitant]
     Indication: ORAL CONTRACEPTION
  8. IRON [Concomitant]
     Indication: MINERAL SUPPLEMENTATION
  9. PREDNISONE [Concomitant]
     Dosage: 15MG DAILY-FLUCTUATING UP AND DOWN
  10. PREDNISONE [Concomitant]
     Indication: PRODUCT USED FOR UNKNOWN INDICATION
     Dates: start: 20110901

REACTIONS (8)
  - INTESTINAL RESECTION [None]
  - INTESTINAL OBSTRUCTION [None]
  - MUSCLE SPASMS [None]
  - ABNORMAL FAECES [None]
  - POSTOPERATIVE WOUND INFECTION [None]
  - DRUG EFFECT DECREASED [None]
  - INFLAMMATION [None]
  - ABDOMINAL ABSCESS [None]
